FAERS Safety Report 7049423-5 (Version None)
Quarter: 2010Q4

REPORT INFORMATION
  Report Type: 
  Country: None (occurrence: None)
  Receive Date: 20101018
  Receipt Date: 20101011
  Transmission Date: 20110411
  Serious: No
  Sender: FDA-Public Use
  Company Number: US-PFIZER INC-2010129529

PATIENT
  Sex: Female
  Weight: 59.864 kg

DRUGS (4)
  1. LYRICA [Suspect]
     Indication: FIBROMYALGIA
     Dosage: 50 MG ONE IN THE MORNING AND 75 MG ONE AT NIGHT, 2X/DAY
     Route: 048
     Dates: start: 20100826
  2. SYNTHROID [Concomitant]
     Indication: HYPOTHYROIDISM
     Dosage: UNK
  3. MULTI-VITAMINS [Concomitant]
     Dosage: UNK
  4. VITAMIN D [Concomitant]
     Dosage: UNK

REACTIONS (2)
  - ALOPECIA [None]
  - SOMNOLENCE [None]
